FAERS Safety Report 7611012-9 (Version None)
Quarter: 2011Q3

REPORT INFORMATION
  Report Type: 
  Country: None (occurrence: None)
  Receive Date: 20110715
  Receipt Date: 20110706
  Transmission Date: 20111222
  Serious: Yes (Hospitalization)
  Sender: FDA-Public Use
  Company Number: US-JNJFOC-20110702509

PATIENT
  Sex: Female
  Weight: 72.58 kg

DRUGS (2)
  1. REMICADE [Suspect]
     Indication: CROHN'S DISEASE
     Route: 042
     Dates: start: 20100101
  2. REMICADE [Suspect]
     Route: 042

REACTIONS (7)
  - HYSTERECTOMY [None]
  - DRUG EFFECT DECREASED [None]
  - PALLOR [None]
  - NAUSEA [None]
  - URINARY RETENTION [None]
  - MALAISE [None]
  - INFUSION RELATED REACTION [None]
